FAERS Safety Report 17493077 (Version 2)
Quarter: 2022Q3

REPORT INFORMATION
  Report Type: Spontaneous
  Country: DK (occurrence: DK)
  Receive Date: 20200304
  Receipt Date: 20220909
  Transmission Date: 20221027
  Serious: Yes (Hospitalization)
  Sender: FDA-Public Use
  Company Number: None

PATIENT
  Age: 44 Year
  Sex: Female

DRUGS (18)
  1. ARIPIPRAZOLE [Suspect]
     Active Substance: ARIPIPRAZOLE
     Indication: Schizophrenia
     Dosage: STRENGTH: 20 MG +10 MG AND 15 MG
     Route: 048
     Dates: start: 2009
  2. PALIPERIDONE [Suspect]
     Active Substance: PALIPERIDONE
     Indication: Schizophrenia
     Dosage: 3 MILLIGRAM DAILY; STRENGTH: 3 MG DOSAGE: CURRENT 3 MG DAILY
     Route: 048
     Dates: start: 20200203
  3. POTASSIUM CHLORIDE [Concomitant]
     Active Substance: POTASSIUM CHLORIDE
     Indication: Mineral supplementation
     Dosage: STRENGTH: 750 MG
     Route: 048
     Dates: start: 202001
  4. FLUTICASONE PROPIONATE [Concomitant]
     Active Substance: FLUTICASONE PROPIONATE
     Indication: Asthma
     Dosage: 2 DOSAGE FORMS, STRENGTH: 250 MCG / DOSE
     Route: 055
     Dates: start: 202001
  5. LASIX [Concomitant]
     Active Substance: FUROSEMIDE
     Indication: Diuretic therapy
     Dosage: STRENGTH: 60 MG
     Route: 048
     Dates: start: 202001
  6. LEVOTHYROXINE [Concomitant]
     Active Substance: LEVOTHYROXINE
     Indication: Hypothyroidism
     Dosage: STRENGTH: 50 MCG
     Route: 048
     Dates: start: 202001
  7. PANTOPRAZOLE [Concomitant]
     Active Substance: PANTOPRAZOLE
     Indication: Gastrooesophageal reflux disease
     Dosage: STRENGTH: 20 MG
     Route: 048
     Dates: start: 202001
  8. ALBUTEROL [Concomitant]
     Active Substance: ALBUTEROL
     Indication: Bronchospasm
     Dosage: 1 DOSAGE FORMS, STRENGTH: 1 MG / ML
     Dates: start: 202001
  9. NICORETTE [Concomitant]
     Active Substance: NICOTINE
     Indication: Smoking cessation therapy
     Dosage: 1 DOSAGE FORM, STRENGTH: 4 MG, DOSAGE: 1 GUM AS NEEDED, AT MOST 24 TIMES DAILY
     Route: 048
     Dates: start: 2019
  10. ALBUTEROL SULFATE [Concomitant]
     Active Substance: ALBUTEROL SULFATE
     Indication: Asthma
     Dosage: STRENGTH: 0.1 MG / DOSE, DOSAGE: 4 BREATHS AS NEEDED AT MOST 6 TIMES DAILY
     Route: 055
     Dates: start: 202001
  11. ACETAMINOPHEN [Concomitant]
     Active Substance: ACETAMINOPHEN
     Indication: Pain
     Dosage: 4000 MG, STRENGTH: 500 MG
     Route: 048
     Dates: start: 202001
  12. LAKTULOSE ^NMI^ [Concomitant]
     Indication: Constipation
     Dosage: 15 ML, STRENGTH: 600 MG / ML, DOSAGE: 15 ML AS NEEDED NO MORE THAN 2 TIMES DAILY
     Route: 048
     Dates: start: 202001
  13. OLODATEROL HYDROCHLORIDE\TIOTROPIUM BROMIDE MONOHYDRATE [Concomitant]
     Active Substance: OLODATEROL HYDROCHLORIDE\TIOTROPIUM BROMIDE MONOHYDRATE
     Indication: Asthma
     Dosage: 2 DOSAGE FORMS, STRENGTH: 2.5+2.5 MCG
     Route: 055
     Dates: start: 202001
  14. ALBUTEROL [Concomitant]
     Active Substance: ALBUTEROL
     Indication: Asthma
     Dosage: 2 DOSAGE FORMS, STRENGTH: 0.2 MG / DISC
     Route: 055
     Dates: start: 202002
  15. CITALOPRAM [Concomitant]
     Active Substance: CITALOPRAM HYDROBROMIDE
     Indication: Schizophrenia
     Dosage: UNIT DOSE : 40 MG , FREQUENCY TIME : 1 DAY
     Dates: start: 2010
  16. ORPHENADRINE HYDROCHLORIDE [Concomitant]
     Active Substance: ORPHENADRINE HYDROCHLORIDE
     Indication: Schizophrenia
     Dosage: STRENGTH: 50 MG , UNIT DOSE : 150 MG , FREQUENCY TIME : 1 DAY
     Dates: start: 2010
  17. CIPRALEX [Concomitant]
     Active Substance: ESCITALOPRAM OXALATE
     Indication: Antidepressant therapy
     Dosage: DOSAGE: 5 MG
     Dates: start: 2015
  18. RIVOTRIL [Concomitant]
     Active Substance: CLONAZEPAM
     Indication: Schizophrenia
     Dosage: DOSAGE: MAKSIMAL TWICE DAILY

REACTIONS (3)
  - Weight increased [Unknown]
  - Pickwickian syndrome [Unknown]
  - Dyspnoea [Unknown]
